FAERS Safety Report 13334100 (Version 33)
Quarter: 2022Q1

REPORT INFORMATION
  Report Type: Report from Study
  Country: JP (occurrence: JP)
  Receive Date: 20170314
  Receipt Date: 20220202
  Transmission Date: 20220423
  Serious: Yes (Hospitalization)
  Sender: FDA-Public Use
  Company Number: JP-ABBVIE-17P-087-1902427-00

PATIENT
  Age: 58 Year
  Sex: Male
  Weight: 58 kg

DRUGS (60)
  1. CARBIDOPA\LEVODOPA [Suspect]
     Active Substance: CARBIDOPA\LEVODOPA
     Indication: Product used for unknown indication
     Dosage: MD 8 ML, CD 2 ML/HR FOR 16 HR
     Route: 050
     Dates: start: 20170216, end: 20170216
  2. CARBIDOPA\LEVODOPA [Suspect]
     Active Substance: CARBIDOPA\LEVODOPA
     Dosage: MD 8 ML, CD 2.2 ML/HR FOR 16 HR, ED 1 ML/UNIT FOR 1
     Route: 050
     Dates: start: 20170216, end: 20170217
  3. CARBIDOPA\LEVODOPA [Suspect]
     Active Substance: CARBIDOPA\LEVODOPA
     Dosage: MD 8 ML, CD 2.4 ML/HR FOR 16 HR, ED 1 ML/UNIT FOR 1
     Route: 050
     Dates: start: 20170217, end: 20170217
  4. CARBIDOPA\LEVODOPA [Suspect]
     Active Substance: CARBIDOPA\LEVODOPA
     Dosage: MD 8 ML, CD 2.7 ML/HR FOR 16 HR, ED 1 ML/UNIT FOR 1
     Route: 050
     Dates: start: 20170217, end: 20170220
  5. CARBIDOPA\LEVODOPA [Suspect]
     Active Substance: CARBIDOPA\LEVODOPA
     Dosage: MD 8 ML, CD 2.9 ML/HR FOR 16 HR, ED 1 ML/UNIT FOR 1
     Route: 050
     Dates: start: 20170220, end: 20170221
  6. CARBIDOPA\LEVODOPA [Suspect]
     Active Substance: CARBIDOPA\LEVODOPA
     Dosage: MD 7 ML, CD 3.1 ML/HR FOR 16 HR, ED 1 ML/UNIT FOR 1
     Route: 050
     Dates: start: 20170221, end: 20170221
  7. CARBIDOPA\LEVODOPA [Suspect]
     Active Substance: CARBIDOPA\LEVODOPA
     Dosage: MD 6 ML, CD 3.3 ML/HR FOR 16 HR, ED 1.5 ML/UNIT FOR 1
     Route: 050
     Dates: start: 20170221, end: 20170223
  8. CARBIDOPA\LEVODOPA [Suspect]
     Active Substance: CARBIDOPA\LEVODOPA
     Dosage: MD 6 ML, CD 3.5 ML/HR FOR 16 HR, ED 2 ML/UNIT FOR 1
     Route: 050
     Dates: start: 20170223, end: 20170223
  9. CARBIDOPA\LEVODOPA [Suspect]
     Active Substance: CARBIDOPA\LEVODOPA
     Dosage: MD 6 ML, CD 3.7 ML/HR FOR 16 HR, ED 2 ML/UNIT FOR 1
     Route: 050
     Dates: start: 20170223, end: 20170224
  10. CARBIDOPA\LEVODOPA [Suspect]
     Active Substance: CARBIDOPA\LEVODOPA
     Dosage: MD 6 ML, CD 3.7 ML/HR FOR 16 HR, ED 2 ML/UNIT FOR 1
     Route: 050
     Dates: start: 20170224, end: 20170227
  11. CARBIDOPA\LEVODOPA [Suspect]
     Active Substance: CARBIDOPA\LEVODOPA
     Dosage: MD 6 ML, CD 3.9 ML/HR FOR 16 HR, ED 2 ML/UNIT FOR 1
     Route: 050
     Dates: start: 20170227, end: 20170301
  12. CARBIDOPA\LEVODOPA [Suspect]
     Active Substance: CARBIDOPA\LEVODOPA
     Dosage: MD 6 ML, CD: 4.1 ML/HR FOR 16 HR, ED 2 ML/UNIT FOR 2
     Route: 050
     Dates: start: 20170301, end: 20170302
  13. CARBIDOPA\LEVODOPA [Suspect]
     Active Substance: CARBIDOPA\LEVODOPA
     Dosage: MD 6 ML, CD 4.4 ML/HR FOR 16 HR, ED 2 ML/UNIT FOR 2
     Route: 050
     Dates: start: 20170302, end: 20170303
  14. CARBIDOPA\LEVODOPA [Suspect]
     Active Substance: CARBIDOPA\LEVODOPA
     Dosage: MD 6 ML, CD 4.4 ML/HR FOR 16 HR, ED 3 ML/UNIT FOR 2
     Route: 050
     Dates: start: 20170303, end: 20170310
  15. CARBIDOPA\LEVODOPA [Suspect]
     Active Substance: CARBIDOPA\LEVODOPA
     Dosage: MD 9 ML, CD 4.4 ML/HR FOR 16 HR, ED 3 ML/UNIT FOR 2
     Route: 050
     Dates: start: 20170311, end: 20170317
  16. CARBIDOPA\LEVODOPA [Suspect]
     Active Substance: CARBIDOPA\LEVODOPA
     Dosage: MD 9 ML, CD 4.6 ML/HR FOR 16 HR, ED 3 ML/UNIT FOR 2
     Route: 050
     Dates: start: 20170317, end: 20170405
  17. CARBIDOPA\LEVODOPA [Suspect]
     Active Substance: CARBIDOPA\LEVODOPA
     Dosage: MD 9 ML, CD 4.4 ML/HR FOR 16 HR, ED 3 ML/UNIT FOR 2
     Route: 050
     Dates: start: 20170405, end: 20170411
  18. CARBIDOPA\LEVODOPA [Suspect]
     Active Substance: CARBIDOPA\LEVODOPA
     Dosage: MD 9 ML, CD 4.2 ML/HR FOR 16 HR, ED 3 ML/UNIT FOR 2
     Route: 050
     Dates: start: 20170411, end: 20170414
  19. CARBIDOPA\LEVODOPA [Suspect]
     Active Substance: CARBIDOPA\LEVODOPA
     Dosage: MD 9 ML, CD 4.4 ML/HR FOR 16 HR, ED 2.6 ML/UNIT FOR 2
     Route: 050
     Dates: start: 20170414, end: 20170419
  20. CARBIDOPA\LEVODOPA [Suspect]
     Active Substance: CARBIDOPA\LEVODOPA
     Dosage: MD 9 ML, CD 4.5 ML/HR FOR 16 HR, ED 2.6 ML/UNIT FOR 2
     Route: 050
     Dates: start: 20170419, end: 20170425
  21. CARBIDOPA\LEVODOPA [Suspect]
     Active Substance: CARBIDOPA\LEVODOPA
     Dosage: MD 9 ML, CD 3.8 ML/HR FOR 16 HR, ED 2.6 ML/UNIT FOR 2
     Route: 050
     Dates: start: 20170425, end: 20170502
  22. CARBIDOPA\LEVODOPA [Suspect]
     Active Substance: CARBIDOPA\LEVODOPA
     Dosage: MD 9 ML, CD 4 ML/HR FOR 16 HR, ED 2.6 ML/UNIT FOR 2
     Route: 050
     Dates: start: 20170502, end: 20170515
  23. CARBIDOPA\LEVODOPA [Suspect]
     Active Substance: CARBIDOPA\LEVODOPA
     Dosage: MD 9 ML, CD 4 ML/HR FOR 13 HR, ED 2.6 ML/UNIT FOR 3
     Route: 050
     Dates: start: 20170516, end: 20170912
  24. CARBIDOPA\LEVODOPA [Suspect]
     Active Substance: CARBIDOPA\LEVODOPA
     Dosage: MD 9 ML, CD 4 ML/HR FOR 13 HR, ED 2.6 ML/UNIT FOR 3
     Route: 050
     Dates: start: 20170912, end: 20170926
  25. CARBIDOPA\LEVODOPA [Suspect]
     Active Substance: CARBIDOPA\LEVODOPA
     Dosage: MD 9 ML, CD 4.1 ML/HR FOR 13 HR, ED 2.6 ML/UNIT FOR 3
     Route: 050
     Dates: start: 20171226, end: 20180227
  26. CARBIDOPA\LEVODOPA [Suspect]
     Active Substance: CARBIDOPA\LEVODOPA
     Dosage: MD 9 ML, CD 4.2 ML/HR FOR 13 HR, ED 2.7 ML/UNIT FOR 3
     Route: 050
     Dates: start: 20180227, end: 20180704
  27. CARBIDOPA\LEVODOPA [Suspect]
     Active Substance: CARBIDOPA\LEVODOPA
     Dosage: MD 9.5 ML, CD 4.2 ML/HR FOR 13 HR, ED 2.7 ML/UNIT FOR 3
     Route: 050
     Dates: start: 20180704, end: 20180710
  28. CARBIDOPA\LEVODOPA [Suspect]
     Active Substance: CARBIDOPA\LEVODOPA
     Dosage: MD 9.5 ML, CD 4.2 ML/HR FOR 13 HR, ED 3.2 ML/UNIT FOR 3
     Route: 050
     Dates: start: 20180710, end: 20180817
  29. CARBIDOPA\LEVODOPA [Suspect]
     Active Substance: CARBIDOPA\LEVODOPA
     Dosage: MD 9.5 ML, CD 4.2 ML/HR FOR 13 HR, ED 3.0 ML/UNIT FOR 3
     Route: 050
     Dates: start: 20180817, end: 20181222
  30. CARBIDOPA\LEVODOPA [Suspect]
     Active Substance: CARBIDOPA\LEVODOPA
     Dosage: MD 9.5 ML, CD 4.2 ML/HR FOR 13 HR, ED 3.0 ML/UNIT FOR 3
     Route: 050
     Dates: start: 20181225
  31. CARBIDOPA\LEVODOPA [Suspect]
     Active Substance: CARBIDOPA\LEVODOPA
     Dosage: MD 9.0 MG/UNIT, CD 4.2 ML/HR FOR 11 HRS, ED FOR 3.0 MG/UNIT FOR ABOUT 2 TIMES
     Route: 050
  32. BOTOX [Suspect]
     Active Substance: ONABOTULINUMTOXINA
     Indication: Product used for unknown indication
     Route: 030
     Dates: start: 20180717, end: 20180717
  33. BOTOX [Suspect]
     Active Substance: ONABOTULINUMTOXINA
     Route: 030
     Dates: start: 20190219, end: 20190219
  34. ROTIGOTINE [Concomitant]
     Active Substance: ROTIGOTINE
     Indication: Product used for unknown indication
     Route: 062
     Dates: end: 20170328
  35. ROTIGOTINE [Concomitant]
     Active Substance: ROTIGOTINE
     Route: 062
     Dates: start: 20170328, end: 20170511
  36. ROTIGOTINE [Concomitant]
     Active Substance: ROTIGOTINE
     Route: 062
     Dates: start: 20170511
  37. NITRAZEPAM [Concomitant]
     Active Substance: NITRAZEPAM
     Indication: Product used for unknown indication
     Route: 048
  38. ETIZOLAM [Concomitant]
     Active Substance: ETIZOLAM
     Indication: Product used for unknown indication
     Route: 048
  39. ZONISAMIDE [Concomitant]
     Active Substance: ZONISAMIDE
     Indication: Product used for unknown indication
     Route: 048
     Dates: start: 20170228, end: 20170404
  40. ZONISAMIDE [Concomitant]
     Active Substance: ZONISAMIDE
     Route: 048
     Dates: start: 20170405, end: 20170531
  41. QUETIAPINE FUMARATE [Concomitant]
     Active Substance: QUETIAPINE FUMARATE
     Indication: Product used for unknown indication
     Dates: start: 20170217, end: 20170423
  42. QUETIAPINE FUMARATE [Concomitant]
     Active Substance: QUETIAPINE FUMARATE
     Dates: start: 20170424, end: 20170507
  43. QUETIAPINE FUMARATE [Concomitant]
     Active Substance: QUETIAPINE FUMARATE
     Dates: start: 20170508
  44. CARBIDOPA\LEVODOPA [Concomitant]
     Active Substance: CARBIDOPA\LEVODOPA
     Indication: Product used for unknown indication
     Route: 048
     Dates: start: 20170516
  45. CARBIDOPA\LEVODOPA [Concomitant]
     Active Substance: CARBIDOPA\LEVODOPA
     Route: 048
     Dates: start: 20181223, end: 20181224
  46. CARBIDOPA\LEVODOPA [Concomitant]
     Active Substance: CARBIDOPA\LEVODOPA
     Route: 048
     Dates: start: 20181223, end: 20181224
  47. CARBIDOPA\LEVODOPA [Concomitant]
     Active Substance: CARBIDOPA\LEVODOPA
     Route: 048
     Dates: start: 20181225, end: 20181225
  48. PYRIDOXAL PHOSPHATE [Concomitant]
     Active Substance: PYRIDOXAL PHOSPHATE
     Indication: Product used for unknown indication
     Dates: start: 20170321, end: 20170524
  49. PYRIDOXAL PHOSPHATE [Concomitant]
     Active Substance: PYRIDOXAL PHOSPHATE
     Route: 048
     Dates: start: 20170614, end: 20171225
  50. PYRIDOXAL PHOSPHATE [Concomitant]
     Active Substance: PYRIDOXAL PHOSPHATE
     Route: 048
     Dates: start: 20171226
  51. BENFOTIAMINE [Concomitant]
     Active Substance: BENFOTIAMINE
     Indication: Prophylaxis
     Route: 048
     Dates: start: 20170517, end: 20170524
  52. VITAMIN B COMPLEX [Concomitant]
     Active Substance: CYANOCOBALAMIN\DEXPANTHENOL\NIACINAMIDE\PYRIDOXINE HYDROCHLORIDE\RIBOFLAVIN 5^-PHOSPHATE SODIUM\THIA
     Indication: Prophylaxis
     Route: 048
     Dates: start: 20170525
  53. ENTACAPONE [Concomitant]
     Active Substance: ENTACAPONE
     Indication: Product used for unknown indication
     Dates: start: 20170412
  54. DICLOFENAC SODIUM [Concomitant]
     Active Substance: DICLOFENAC SODIUM
     Indication: Product used for unknown indication
     Dosage: Q.S
     Dates: start: 20170808, end: 20170912
  55. CARBIDOPA\LEVODOPA [Concomitant]
     Active Substance: CARBIDOPA\LEVODOPA
     Indication: Parkinson^s disease
     Dosage: THE AMOUNT OF LEVODOPA CONVERTED TO 16-HOUR DOSE DURING DAYTIME WAS 200.
     Route: 048
     Dates: start: 20170516, end: 2017
  56. CARBIDOPA\LEVODOPA [Concomitant]
     Active Substance: CARBIDOPA\LEVODOPA
     Route: 048
     Dates: start: 20170912, end: 20170912
  57. ENEVO [Concomitant]
     Indication: Prophylaxis
     Route: 048
     Dates: start: 20171025, end: 20171025
  58. FURSULTIAMINE [Concomitant]
     Active Substance: FURSULTIAMINE
     Indication: Product used for unknown indication
     Route: 048
     Dates: start: 20170614, end: 20171225
  59. FURSULTIAMINE [Concomitant]
     Active Substance: FURSULTIAMINE
     Route: 048
     Dates: start: 20171225
  60. ELDECALCITOL [Concomitant]
     Active Substance: ELDECALCITOL
     Indication: Product used for unknown indication
     Dosage: 0.75 MICROGRAM
     Route: 065

REACTIONS (26)
  - Pneumonia aspiration [Recovered/Resolved]
  - Unintentional medical device removal [Recovered/Resolved]
  - Device dislocation [Recovered/Resolved]
  - Abdominal pain [Recovered/Resolved]
  - Delusion [Recovered/Resolved]
  - Hallucination [Recovered/Resolved]
  - Dystonia [Not Recovered/Not Resolved]
  - Urticaria chronic [Recovering/Resolving]
  - Vitamin B1 deficiency [Recovered/Resolved]
  - Gastric fistula [Recovered/Resolved]
  - Device issue [Recovered/Resolved]
  - Device issue [Recovered/Resolved]
  - Device kink [Recovered/Resolved]
  - Torticollis [Recovering/Resolving]
  - Device breakage [Recovered/Resolved]
  - Pain in extremity [Not Recovered/Not Resolved]
  - Stoma site discharge [Recovered/Resolved]
  - Pain in extremity [Not Recovered/Not Resolved]
  - Delusion [Recovered/Resolved]
  - On and off phenomenon [Not Recovered/Not Resolved]
  - Dysphagia [Recovered/Resolved]
  - Dermatitis infected [Recovered/Resolved]
  - Stoma site hypergranulation [Recovered/Resolved]
  - Dysphagia [Recovered/Resolved]
  - Mobility decreased [Unknown]
  - Speech disorder [Unknown]

NARRATIVE: CASE EVENT DATE: 20170216
